FAERS Safety Report 6149576-7 (Version None)
Quarter: 2009Q2

REPORT INFORMATION
  Report Type: 
  Country: None (occurrence: None)
  Receive Date: 20090409
  Receipt Date: 20090402
  Transmission Date: 20091009
  Serious: Yes (Life-Threatening, Other)
  Sender: FDA-Public Use
  Company Number: PHHY2009CA12300

PATIENT
  Sex: Female
  Weight: 134 kg

DRUGS (3)
  1. ACLASTA [Suspect]
     Indication: OSTEOPOROSIS
     Dosage: 5 MG
     Dates: start: 20081014
  2. ACE INHIBITORS AND DIURETICS [Concomitant]
  3. VITAMIN D3 [Concomitant]

REACTIONS (14)
  - ARTHRALGIA [None]
  - BACK PAIN [None]
  - BLOOD POTASSIUM INCREASED [None]
  - BLOOD SODIUM DECREASED [None]
  - CALCIUM METABOLISM DISORDER [None]
  - COUGH [None]
  - CREATININE RENAL CLEARANCE INCREASED [None]
  - DYSPNOEA [None]
  - GLOMERULAR FILTRATION RATE DECREASED [None]
  - HAEMOGLOBIN DECREASED [None]
  - NAUSEA [None]
  - PARATHYROID TUMOUR BENIGN [None]
  - RENAL FAILURE [None]
  - VOMITING [None]
